FAERS Safety Report 6154088-0 (Version None)
Quarter: 2009Q2

REPORT INFORMATION
  Report Type: 
  Country: None (occurrence: None)
  Receive Date: 20090414
  Receipt Date: 20090409
  Transmission Date: 20091009
  Serious: Yes (Other)
  Sender: FDA-Public Use
  Company Number: DE-WYE-G03485209

PATIENT
  Sex: Female

DRUGS (2)
  1. TREVILOR [Suspect]
     Route: 048
     Dates: end: 20090101
  2. TREVILOR [Suspect]
     Route: 048
     Dates: start: 20090101, end: 20090101

REACTIONS (3)
  - DRUG EXPOSURE DURING PREGNANCY [None]
  - DRUG WITHDRAWAL SYNDROME [None]
  - SUICIDAL IDEATION [None]
